FAERS Safety Report 9419944 (Version 1)
Quarter: 2013Q3

REPORT INFORMATION
  Report Type: Spontaneous
  Country: US (occurrence: None)
  Receive Date: 20130724
  Receipt Date: 20130724
  Transmission Date: 20140515
  Serious: Yes (Other)
  Sender: FDA-Public Use
  Company Number: None

PATIENT
  Age: 35 Year
  Sex: Female
  Weight: 58.97 kg

DRUGS (1)
  1. NORTRIPTYLINE [Suspect]
     Dosage: 25MG THREE TIMES DAILY PO
     Route: 048
     Dates: start: 20130617, end: 20130723

REACTIONS (3)
  - Fatigue [None]
  - Dry mouth [None]
  - Atrial fibrillation [None]
